FAERS Safety Report 16364228 (Version 2)
Quarter: 2019Q3

REPORT INFORMATION
  Report Type: Report from Study
  Country: US (occurrence: US)
  Receive Date: 20190528
  Receipt Date: 20190716
  Transmission Date: 20191004
  Serious: Yes (Hospitalization)
  Sender: FDA-Public Use
  Company Number: US-ACTELION-A-NJ2019-189794

PATIENT
  Age: 12 Year
  Sex: Female

DRUGS (4)
  1. DIGOXIN. [Concomitant]
     Active Substance: DIGOXIN
     Dosage: 125 MG, QD
     Dates: start: 201904
  2. REMODULIN [Concomitant]
     Active Substance: TREPROSTINIL
     Dosage: 30 NG/KG, PER MIN
     Dates: start: 201904
  3. ADCIRCA [Concomitant]
     Active Substance: TADALAFIL
     Dosage: 40 MG, QD
     Dates: start: 201904
  4. TRACLEER [Suspect]
     Active Substance: BOSENTAN
     Indication: PULMONARY ARTERIAL HYPERTENSION
     Dosage: 62.5 MG, BID
     Route: 048
     Dates: start: 20190412

REACTIONS (6)
  - Diarrhoea [Unknown]
  - Catheterisation cardiac [Recovered/Resolved]
  - Application site irritation [Unknown]
  - Catheter placement [Recovered/Resolved]
  - Hospitalisation [Unknown]
  - Nausea [Unknown]

NARRATIVE: CASE EVENT DATE: 201904
